FAERS Safety Report 7814444-9 (Version None)
Quarter: 2011Q4

REPORT INFORMATION
  Report Type: 
  Country: None (occurrence: None)
  Receive Date: 20111014
  Receipt Date: 20111002
  Transmission Date: 20120403
  Serious: No
  Sender: FDA-Public Use
  Company Number: US-ELI_LILLY_AND_COMPANY-US201107007988

PATIENT
  Age: 47 Year
  Sex: Male

DRUGS (4)
  1. WELLBUTRIN [Concomitant]
     Dosage: 1 DF, EACH MORNING
  2. LUNESTA [Concomitant]
     Dosage: 3 MG, EACH EVENING
  3. SUBOXONE [Concomitant]
     Indication: DRUG DEPENDENCE
     Dosage: 1 MG, QD
  4. CYMBALTA [Suspect]
     Indication: DEPRESSION
     Dosage: 30 MG, QD
     Route: 048
     Dates: start: 20110601, end: 20110711

REACTIONS (25)
  - PARANOIA [None]
  - FEAR [None]
  - ABDOMINAL PAIN UPPER [None]
  - DEPRESSION [None]
  - DISTURBANCE IN ATTENTION [None]
  - TINNITUS [None]
  - SPEECH DISORDER [None]
  - CRYING [None]
  - IMPAIRED SELF-CARE [None]
  - INSOMNIA [None]
  - DRUG INEFFECTIVE [None]
  - DIZZINESS [None]
  - LETHARGY [None]
  - PARAESTHESIA [None]
  - EMPHYSEMA [None]
  - ADVERSE EVENT [None]
  - EMOTIONAL DISORDER [None]
  - DYSPNOEA [None]
  - INTENTIONAL DRUG MISUSE [None]
  - HALLUCINATION, VISUAL [None]
  - DRUG WITHDRAWAL SYNDROME [None]
  - MOVEMENT DISORDER [None]
  - HALLUCINATION, AUDITORY [None]
  - MIDDLE INSOMNIA [None]
  - TACHYPHRENIA [None]
